FAERS Safety Report 6505727-3 (Version None)
Quarter: 2009Q4

REPORT INFORMATION
  Report Type: 
  Country: None (occurrence: None)
  Receive Date: 20091218
  Receipt Date: 20091215
  Transmission Date: 20100525
  Serious: Yes (Other)
  Sender: FDA-Public Use
  Company Number: B0603139A

PATIENT
  Sex: Male

DRUGS (4)
  1. NIQUITIN CQ 4MG LOZENGE [Suspect]
     Dosage: 4MG SINGLE DOSE
     Route: 048
     Dates: start: 20091027, end: 20091027
  2. FOLIC ACID [Concomitant]
     Indication: DRUG USE FOR UNKNOWN INDICATION
     Dosage: 5MG PER DAY
     Route: 065
  3. SIMVASTATIN [Concomitant]
     Indication: DRUG USE FOR UNKNOWN INDICATION
     Dosage: 10MG PER DAY
     Route: 065
  4. ASPIRIN [Concomitant]
     Indication: DRUG USE FOR UNKNOWN INDICATION
     Dosage: 75MG PER DAY
     Route: 065

REACTIONS (2)
  - ANGIOEDEMA [None]
  - LIP SWELLING [None]
